FAERS Safety Report 8317631-9 (Version None)
Quarter: 2012Q2

REPORT INFORMATION
  Report Type: 
  Country: None (occurrence: None)
  Receive Date: 20120427
  Receipt Date: 20110411
  Transmission Date: 20120825
  Serious: No
  Sender: FDA-Public Use
  Company Number: US-GLAXOSMITHKLINE-A0922447A

PATIENT
  Sex: Female

DRUGS (2)
  1. TYLENOL [Concomitant]
  2. ONDANSETRON [Suspect]
     Indication: PRODUCT USED FOR UNKNOWN INDICATION
     Route: 048

REACTIONS (3)
  - HEADACHE [None]
  - MATERNAL EXPOSURE DURING PREGNANCY [None]
  - ASTHENIA [None]
